FAERS Safety Report 6253639-5 (Version None)
Quarter: 2009Q3

REPORT INFORMATION
  Report Type: 
  Country: None (occurrence: None)
  Receive Date: 20090701
  Receipt Date: 20090623
  Transmission Date: 20100115
  Serious: Yes (Other)
  Sender: FDA-Public Use
  Company Number: KR-PFIZER INC-2009233495

PATIENT
  Age: 53 Year

DRUGS (1)
  1. TOLTERODINE TARTRATE [Suspect]
     Indication: CYSTITIS
     Dosage: 4 MG, UNK
     Route: 048
     Dates: start: 20090601

REACTIONS (8)
  - AGITATION [None]
  - ANXIETY [None]
  - DISTURBANCE IN ATTENTION [None]
  - DIZZINESS [None]
  - PALPITATIONS [None]
  - SOMNOLENCE [None]
  - VISION BLURRED [None]
  - VISUAL IMPAIRMENT [None]
